FAERS Safety Report 5928051-6 (Version None)
Quarter: 2008Q4

REPORT INFORMATION
  Report Type: 
  Country: None (occurrence: None)
  Receive Date: 20081023
  Receipt Date: 20081014
  Transmission Date: 20090506
  Serious: Yes (Other)
  Sender: FDA-Public Use
  Company Number: A0752845A

PATIENT
  Sex: Male

DRUGS (6)
  1. AVANDIA [Suspect]
     Route: 048
  2. AVANDAMET [Suspect]
     Route: 048
  3. METFORMIN [Suspect]
  4. GLIPIZIDE [Suspect]
  5. PREDNISONE TAB [Suspect]
  6. LASIX [Suspect]

REACTIONS (10)
  - ADVERSE EVENT [None]
  - APATHY [None]
  - BALANCE DISORDER [None]
  - DRUG INEFFECTIVE [None]
  - FATIGUE [None]
  - GAIT DISTURBANCE [None]
  - LYMPHOMA [None]
  - NAUSEA [None]
  - OEDEMA PERIPHERAL [None]
  - POLYNEUROPATHY [None]
